FAERS Safety Report 7008229-3 (Version None)
Quarter: 2010Q3

REPORT INFORMATION
  Report Type: 
  Country: None (occurrence: None)
  Receive Date: 20100922
  Receipt Date: 20100916
  Transmission Date: 20110219
  Serious: Yes (Death, Hospitalization)
  Sender: FDA-Public Use
  Company Number: US-ELI_LILLY_AND_COMPANY-US201009005219

PATIENT
  Sex: Female

DRUGS (3)
  1. GEMZAR [Suspect]
     Indication: PANCREATIC CARCINOMA
     Dosage: 300 MG, WEEKLY (1/W)
     Dates: start: 20091208
  2. GEMZAR [Suspect]
     Dosage: 100 MG, WEEKLY (1/W)
  3. GEMZAR [Suspect]
     Dosage: 50 MG, UNK
     Dates: end: 20100510

REACTIONS (4)
  - ASTHENIA [None]
  - DEATH [None]
  - DYSPNOEA [None]
  - HOSPITALISATION [None]
